FAERS Safety Report 9506210 (Version 1)
Quarter: 2013Q1

REPORT INFORMATION
  Report Type: Spontaneous
  Country: US (occurrence: None)
  Receive Date: 20130220
  Receipt Date: 20130220
  Transmission Date: 20140127
  Serious: No
  Sender: FDA-Public Use
  Company Number: 1000040736

PATIENT
  Age: 66 Year
  Sex: Male

DRUGS (3)
  1. VIIBRYD [Suspect]
     Indication: ANXIETY
     Dosage: 10MG (10 MG, 1 IN 1 D), ORAL
     Route: 048
     Dates: start: 20121019, end: 20121020
  2. ALPRAZOLAM (ALPRAZOLAM) (ALPRAZOLAM) [Concomitant]
  3. ZOLPIDEM (ZOLPIDEM) (ZOLPIDEM) [Concomitant]

REACTIONS (2)
  - Dizziness [None]
  - Off label use [None]
